FAERS Safety Report 6959530-0 (Version None)
Quarter: 2010Q3

REPORT INFORMATION
  Report Type: 
  Country: None (occurrence: None)
  Receive Date: 20100827
  Receipt Date: 20100816
  Transmission Date: 20110219
  Serious: Yes (Hospitalization, Other)
  Sender: FDA-Public Use
  Company Number: DSU-2010-03880

PATIENT
  Age: 73 Year
  Sex: Male

DRUGS (32)
  1. BENICAR [Suspect]
     Indication: HYPERTENSION
     Dosage: 20 MG (20 MG, QD), PER ORAL
     Route: 048
     Dates: start: 20071001, end: 20100530
  2. PIRFENIDONE [Suspect]
     Indication: IDIOPATHIC PULMONARY FIBROSIS
     Dosage: ESCALATED DOSE 2403 MG (2403 MG, 1 IN 1 D)
     Dates: start: 20081007, end: 20081020
  3. PIRFENIDONE [Suspect]
     Indication: IDIOPATHIC PULMONARY FIBROSIS
     Dosage: ESCALATED DOSE 2403 MG (2403 MG, 1 IN 1 D)
     Dates: start: 20081021, end: 20100408
  4. CORDARONE [Suspect]
     Indication: VENTRICULAR TACHYCARDIA
     Dosage: 600 MG (200 MG, TID), PER ORAL, 400 MG (200 MG BID) PER ORAL
     Route: 048
     Dates: start: 20100519, end: 20100528
  5. CORDARONE [Suspect]
     Indication: VENTRICULAR TACHYCARDIA
     Dosage: 600 MG (200 MG, TID), PER ORAL, 400 MG (200 MG BID) PER ORAL
     Route: 048
     Dates: start: 20100529, end: 20100602
  6. DEMADEX [Suspect]
     Indication: HYPERTENSION
     Dosage: 10 MG (10 MG, QD), PER ORAL
     Route: 048
     Dates: start: 20050101, end: 20100530
  7. CLARITIN (GLICLAZIDE) [Concomitant]
  8. SYNTHROID [Concomitant]
  9. VITAMIN B12 [Concomitant]
  10. ACETAMINOPHEN [Concomitant]
  11. FLUOCINONIDE [Concomitant]
  12. FEXOFENADINE HCL [Concomitant]
  13. HYDROMORPHONE HCL [Concomitant]
  14. PRILOSEC (ESOMEPRAZOLE) [Concomitant]
  15. HYDROCODONE [Concomitant]
  16. MUCINEX [Concomitant]
  17. GAS-X (SIMETICONE, SILICON DIOXIDE) [Concomitant]
  18. MYLANDA (MAGNESIUM HYDROXIDE, ALUMINIUM HYDROXIDE GEL DRIED, SIMETICON [Concomitant]
  19. IPRATROPIUM BROMIDE [Concomitant]
  20. SKELAXIN [Concomitant]
  21. SUCRALFATE [Concomitant]
  22. MIRALAX [Concomitant]
  23. LEVAQUIN [Concomitant]
  24. LOPRESSOR (METROPROLOL TARTRATE) [Concomitant]
  25. FLAGYL (METROIDAZOLE) [Concomitant]
  26. ATIVAN [Concomitant]
  27. DARVOCET-N (PARACETAMOL, DEXTROPROPOXYPHENE NAPSILATE) [Concomitant]
  28. ALBUTEROL [Concomitant]
  29. PROTONIX [Concomitant]
  30. SLIDING SCALE INSULIN [Concomitant]
  31. COSYNTROPIN (TETRACOSACTIDE) [Concomitant]
  32. LEVOTHROID [Concomitant]

REACTIONS (18)
  - DEHYDRATION [None]
  - DIARRHOEA [None]
  - DIVERTICULITIS [None]
  - ELECTROCARDIOGRAM ABNORMAL [None]
  - ELECTROCARDIOGRAM QT PROLONGED [None]
  - FAECAL INCONTINENCE [None]
  - HYPOXIA [None]
  - MYOCARDIAL INFARCTION [None]
  - NON-SMALL CELL LUNG CANCER METASTATIC [None]
  - ORTHOSTATIC HYPOTENSION [None]
  - PERICARDIAL EFFUSION [None]
  - PNEUMOMEDIASTINUM [None]
  - PNEUMONIA [None]
  - QRS AXIS ABNORMAL [None]
  - SYNCOPE [None]
  - URINARY INCONTINENCE [None]
  - VENTRICULAR EXTRASYSTOLES [None]
  - VENTRICULAR TACHYCARDIA [None]
